FAERS Safety Report 5221813-2 (Version None)
Quarter: 2007Q1

REPORT INFORMATION
  Report Type: 
  Country: None (occurrence: None)
  Receive Date: 20070125
  Receipt Date: 20070125
  Transmission Date: 20070707
  Serious: Yes (Other)
  Sender: FDA-Public Use
  Company Number: None

PATIENT
  Age: 16 Year
  Sex: Female
  Weight: 72.5755 kg

DRUGS (1)
  1. TRILEPTAL [Suspect]
     Indication: SIMPLE PARTIAL SEIZURES
     Dosage: 150 MG   ONCE A DAY  PO  (DURATION: SINGLE DOSE)
     Route: 048

REACTIONS (3)
  - COMPLEX PARTIAL SEIZURES [None]
  - GENERALISED ERYTHEMA [None]
  - RASH [None]
